FAERS Safety Report 19923107 (Version 1)
Quarter: 2021Q4

REPORT INFORMATION
  Report Type: Spontaneous
  Country: US (occurrence: US)
  Receive Date: 20211004
  Receipt Date: 20211004
  Transmission Date: 20220303
  Serious: Yes (Hospitalization)
  Sender: FDA-Public Use
  Company Number: None

PATIENT
  Sex: Male

DRUGS (3)
  1. AMBRISENTAN [Suspect]
     Active Substance: AMBRISENTAN
  2. TADALAFIL [Concomitant]
     Active Substance: TADALAFIL
  3. ZYRTEC ALLGY [Concomitant]

REACTIONS (5)
  - Chronic kidney disease [None]
  - Anaemia [None]
  - Clostridium difficile infection [None]
  - Diarrhoea [None]
  - Therapy interrupted [None]
